FAERS Safety Report 19734047 (Version 1)
Quarter: 2021Q3

REPORT INFORMATION
  Report Type: Spontaneous
  Country: BR (occurrence: BR)
  Receive Date: 20210823
  Receipt Date: 20210823
  Transmission Date: 20211014
  Serious: Yes (Hospitalization, Other)
  Sender: FDA-Public Use
  Company Number: BR-GLAXOSMITHKLINE-BR2021173715

PATIENT
  Sex: Female

DRUGS (2)
  1. AEROLIN [Suspect]
     Active Substance: ALBUTEROL
     Indication: MUSCULAR WEAKNESS
     Dosage: UNK, 15 ML MORNING AND EVENING
  2. AMIODARONE [Concomitant]
     Active Substance: AMIODARONE
     Indication: PRODUCT USED FOR UNKNOWN INDICATION
     Dosage: UNK

REACTIONS (6)
  - Respiratory disorder [Unknown]
  - Neuromyopathy [Unknown]
  - Off label use [Unknown]
  - Hospitalisation [Unknown]
  - Product use in unapproved indication [Unknown]
  - Endotracheal intubation [Unknown]
